FAERS Safety Report 21497028 (Version 1)
Quarter: 2022Q4

REPORT INFORMATION
  Report Type: Spontaneous
  Country: DE (occurrence: DE)
  Receive Date: 20221023
  Receipt Date: 20221023
  Transmission Date: 20230113
  Serious: Yes (Life-Threatening, Hospitalization, Other)
  Sender: FDA-Public Use
  Company Number: DE-ADRED-05918-01

PATIENT
  Age: 83 Year
  Sex: Male
  Weight: 80 kg

DRUGS (10)
  1. AMLODIPINE [Suspect]
     Active Substance: AMLODIPINE BESYLATE
     Indication: Product used for unknown indication
     Dosage: 5 MILLIGRAM, 0-0-1-0
     Route: 048
  2. BISOPROLOL [Suspect]
     Active Substance: BISOPROLOL
     Indication: Product used for unknown indication
     Dosage: 5 MILLIGRAM, 1-0-1-0
     Route: 048
  3. IRBESARTAN [Suspect]
     Active Substance: IRBESARTAN
     Indication: Product used for unknown indication
     Dosage: 300 MILLIGRAM, 1-0-0-0
     Route: 048
  4. AMIODARONE [Suspect]
     Active Substance: AMIODARONE
     Indication: Product used for unknown indication
     Dosage: 200 MILLIGRAM, 1-0-0-0
     Route: 048
  5. DUTASTERIDE [Suspect]
     Active Substance: DUTASTERIDE
     Indication: Product used for unknown indication
     Dosage: 0.5 MILLIGRAM, 1-0-0-0
     Route: 048
  6. PRADAXA [Suspect]
     Active Substance: DABIGATRAN ETEXILATE MESYLATE
     Indication: Product used for unknown indication
     Dosage: 110 MILLIGRAM, 1-0-1-0
     Route: 048
  7. TORSEMIDE [Suspect]
     Active Substance: TORSEMIDE
     Indication: Product used for unknown indication
     Dosage: 2.5 MILLIGRAM, 1-0-0-0
     Route: 048
  8. ATORVASTATIN [Concomitant]
     Active Substance: ATORVASTATIN
     Indication: Product used for unknown indication
     Dosage: 40 MILLIGRAM, 0-0-1-0
     Route: 048
  9. FOLIC ACID [Concomitant]
     Active Substance: FOLIC ACID
     Indication: Product used for unknown indication
     Dosage: 5 MILLIGRAM (1-0-0-0)
     Route: 048
  10. PANTOPRAZOLE SODIUM [Concomitant]
     Active Substance: PANTOPRAZOLE SODIUM
     Indication: Product used for unknown indication
     Dosage: 20 MILLIGRAM, 1-0-0-0
     Route: 048

REACTIONS (7)
  - Subarachnoid haematoma [Unknown]
  - Depressed level of consciousness [Unknown]
  - Intraventricular haemorrhage [Unknown]
  - Wound [Unknown]
  - Disorientation [Unknown]
  - Fracture [Unknown]
  - Fall [Unknown]
